FAERS Safety Report 4983491-7 (Version None)
Quarter: 2006Q2

REPORT INFORMATION
  Report Type: 
  Country: None (occurrence: None)
  Receive Date: 20060426
  Receipt Date: 20051123
  Transmission Date: 20061013
  Serious: Yes (Hospitalization, Other)
  Sender: FDA-Public Use
  Company Number: US-MERCK-0511USA04369

PATIENT
  Age: 53 Year
  Sex: Female
  Weight: 135 kg

DRUGS (6)
  1. VIOXX [Suspect]
     Indication: OSTEOARTHRITIS
     Route: 048
     Dates: start: 20010404, end: 20040901
  2. ADVAIR DISKUS 100/50 [Concomitant]
     Route: 065
  3. LISINOPRIL [Concomitant]
     Route: 065
  4. NYSTATIN [Concomitant]
     Route: 065
  5. NYSTATIN AND TRIAMCINOLONE ACETONIDE [Concomitant]
     Route: 065
  6. VERAPAMIL [Concomitant]
     Route: 065

REACTIONS (32)
  - ACUTE MYOCARDIAL INFARCTION [None]
  - AGITATION [None]
  - ASTHENIA [None]
  - ATRIAL FIBRILLATION [None]
  - BRONCHIAL HYPERACTIVITY [None]
  - CARDIAC FAILURE CONGESTIVE [None]
  - CARDIO-RESPIRATORY ARREST [None]
  - CARDIOMYOPATHY [None]
  - CHEST PAIN [None]
  - CORONARY ARTERY DISEASE [None]
  - DELIRIUM [None]
  - DEPRESSION [None]
  - DYSPNOEA [None]
  - ENTEROBACTER PNEUMONIA [None]
  - FATIGUE [None]
  - HAEMOTHORAX [None]
  - HYPOKALAEMIA [None]
  - HYPONATRAEMIA [None]
  - MEDIASTINAL INFECTION [None]
  - MITRAL VALVE INCOMPETENCE [None]
  - MYOCARDIAL ISCHAEMIA [None]
  - NAUSEA [None]
  - PAIN IN JAW [None]
  - PLEURAL EFFUSION [None]
  - PNEUMONIA KLEBSIELLA [None]
  - POSTURING [None]
  - RENAL FAILURE [None]
  - SUPRAVENTRICULAR EXTRASYSTOLES [None]
  - SUPRAVENTRICULAR TACHYCARDIA [None]
  - URINARY TRACT INFECTION [None]
  - VAGINAL INFECTION [None]
  - VOMITING [None]
